FAERS Safety Report 6419726-3 (Version None)
Quarter: 2009Q4

REPORT INFORMATION
  Report Type: 
  Country: None (occurrence: None)
  Receive Date: 20091029
  Receipt Date: 20091022
  Transmission Date: 20100525
  Serious: Yes (Hospitalization)
  Sender: FDA-Public Use
  Company Number: AR-AVENTIS-200913197GDDC

PATIENT
  Age: 1 Day
  Sex: Female
  Weight: 2.65 kg

DRUGS (2)
  1. INSULIN GLARGINE [Suspect]
     Indication: DIABETIC RELATIVE
     Route: 064
     Dates: start: 20080801
  2. NOVORAPID [Suspect]
     Indication: DIABETIC RELATIVE
     Dosage: DOSE: UNK
     Route: 064

REACTIONS (3)
  - DRUG EXPOSURE DURING PREGNANCY [None]
  - HYPERBILIRUBINAEMIA NEONATAL [None]
  - MATERNAL DRUGS AFFECTING FOETUS [None]
